FAERS Safety Report 6909489-7 (Version None)
Quarter: 2010Q3

REPORT INFORMATION
  Report Type: 
  Country: None (occurrence: None)
  Receive Date: 20100805
  Receipt Date: 20100727
  Transmission Date: 20110219
  Serious: Yes (Death)
  Sender: FDA-Public Use
  Company Number: GT-WYE-H16442510

PATIENT
  Age: 83 Year
  Sex: Male

DRUGS (1)
  1. PANTECTA [Suspect]
     Route: 048

REACTIONS (1)
  - DEATH [None]
